FAERS Safety Report 17856467 (Version 2)
Quarter: 2020Q2

REPORT INFORMATION
  Report Type: Spontaneous
  Country: JP (occurrence: JP)
  Receive Date: 20200603
  Receipt Date: 20200611
  Transmission Date: 20200714
  Serious: Yes (Life-Threatening, Hospitalization)
  Sender: FDA-Public Use
  Company Number: JP-JNJFOC-20200533014

PATIENT
  Age: 95 Year
  Sex: Female

DRUGS (8)
  1. OHNES ST [Concomitant]
     Indication: PRODUCT USED FOR UNKNOWN INDICATION
     Route: 048
     Dates: end: 20200320
  2. ARICEPT [Suspect]
     Active Substance: DONEPEZIL HYDROCHLORIDE
     Indication: DEMENTIA ALZHEIMER^S TYPE
     Route: 048
     Dates: end: 20200320
  3. LIXIANA [Concomitant]
     Active Substance: EDOXABAN TOSYLATE
     Indication: PRODUCT USED FOR UNKNOWN INDICATION
     Dosage: UNKNOWN
     Route: 065
  4. MEMANTINE HYDROCHLORIDE. [Concomitant]
     Active Substance: MEMANTINE HYDROCHLORIDE
     Indication: DEMENTIA ALZHEIMER^S TYPE
     Route: 048
     Dates: end: 20200320
  5. CEREKINON [Concomitant]
     Active Substance: TRIMEBUTINE
     Indication: PRODUCT USED FOR UNKNOWN INDICATION
     Route: 048
     Dates: end: 20200320
  6. SPIRONOLACTONE. [Concomitant]
     Active Substance: SPIRONOLACTONE
     Indication: PRODUCT USED FOR UNKNOWN INDICATION
     Dosage: UNKNOWN
     Route: 065
  7. LANSOPRAZOLE. [Concomitant]
     Active Substance: LANSOPRAZOLE
     Indication: PRODUCT USED FOR UNKNOWN INDICATION
     Route: 065
  8. REMINYL [Suspect]
     Active Substance: GALANTAMINE
     Indication: DEMENTIA ALZHEIMER^S TYPE
     Route: 048
     Dates: end: 20200320

REACTIONS (9)
  - Altered state of consciousness [Unknown]
  - Off label use [Unknown]
  - Atrioventricular block complete [Unknown]
  - Inappropriate schedule of product administration [Unknown]
  - Renal disorder [Recovering/Resolving]
  - Lack of spontaneous speech [Unknown]
  - Bradycardia [Recovering/Resolving]
  - Liver disorder [Recovering/Resolving]
  - Decreased appetite [Unknown]

NARRATIVE: CASE EVENT DATE: 20200318
